FAERS Safety Report 13831162 (Version 1)
Quarter: 2017Q3

REPORT INFORMATION
  Report Type: Spontaneous
  Country: US (occurrence: US)
  Receive Date: 20170803
  Receipt Date: 20170803
  Transmission Date: 20171127
  Serious: No
  Sender: FDA-Public Use
  Company Number: US-EGALET US INC-US-2017EGA000656

PATIENT
  Sex: Male

DRUGS (1)
  1. ARYMO ER [Suspect]
     Active Substance: MORPHINE SULFATE
     Dosage: 15 MG, UNK
     Route: 065

REACTIONS (3)
  - Drug effect faster than expected [Unknown]
  - Therapeutic response shortened [Unknown]
  - Dizziness [Unknown]
